FAERS Safety Report 23695838 (Version 1)
Quarter: 2024Q2

REPORT INFORMATION
  Report Type: Spontaneous
  Country: US (occurrence: US)
  Receive Date: 20240402
  Receipt Date: 20240402
  Transmission Date: 20240716
  Serious: No
  Sender: FDA-Public Use
  Company Number: US-TEVA-VS-3158348

PATIENT
  Age: 25 Year
  Sex: Male

DRUGS (1)
  1. UZEDY [Suspect]
     Active Substance: RISPERIDONE
     Indication: Bipolar disorder
     Dosage: 50/0.14 MG/ML
     Route: 058
     Dates: start: 20240129

REACTIONS (1)
  - Off label use [Unknown]
